FAERS Safety Report 7095441 (Version 38)
Quarter: 2017Q1

REPORT INFORMATION
  Report Type: Report from Study
  Country: CA (occurrence: CA)
  Receive Date: 20090825
  Receipt Date: 20170125
  Transmission Date: 20170429
  Serious: Yes (Hospitalization, Other)
  Sender: FDA-Public Use
  Company Number: PHHY2009CA21059

PATIENT
  Age: 68 Year
  Sex: Female

DRUGS (8)
  1. SANDOSTATIN LAR DEPOT [Suspect]
     Active Substance: OCTREOTIDE ACETATE
     Dosage: 50 MG, QMO (EVERY 4 WEEKS)
     Route: 030
     Dates: start: 20130703, end: 2016
  2. ONDANSETRON [Suspect]
     Active Substance: ONDANSETRON
     Indication: PRODUCT USED FOR UNKNOWN INDICATION
     Route: 065
  3. TRAMCET [Concomitant]
     Active Substance: ACETAMINOPHEN\TRAMADOL
     Indication: PRODUCT USED FOR UNKNOWN INDICATION
     Route: 065
  4. SANDOSTATIN LAR DEPOT [Suspect]
     Active Substance: OCTREOTIDE ACETATE
     Indication: CARCINOID TUMOUR
     Dosage: 30 MG, QMO (EVERY FOUR WEEKS)
     Route: 030
     Dates: start: 20080401, end: 20120523
  5. SANDOSTATIN LAR DEPOT [Suspect]
     Active Substance: OCTREOTIDE ACETATE
     Dosage: 60 MG, FOR 1 PRE-SURGERY WEEK (X1)
     Route: 030
     Dates: start: 20130605, end: 20130605
  6. SANDOSTATIN LAR DEPOT [Suspect]
     Active Substance: OCTREOTIDE ACETATE
     Dosage: 50 MG, QW2 (EVERY 2 WEEKS)
     Route: 030
     Dates: start: 2016, end: 20170103
  7. SANDOSTATIN LAR DEPOT [Suspect]
     Active Substance: OCTREOTIDE ACETATE
     Dosage: 50 MG, QMO (EVERY FOUR WEEKS)
     Route: 030
     Dates: start: 20120620, end: 20130322
  8. DILAUDID [Concomitant]
     Active Substance: HYDROMORPHONE HYDROCHLORIDE
     Indication: PAIN
     Route: 065

REACTIONS (52)
  - Limb discomfort [Unknown]
  - Dyspnoea [Unknown]
  - Flatulence [Unknown]
  - Syncope [Unknown]
  - Fall [Unknown]
  - Malignant neoplasm progression [Unknown]
  - Tearfulness [Unknown]
  - Anxiety [Unknown]
  - Head injury [Unknown]
  - Asthenia [Unknown]
  - Hepatic lesion [Unknown]
  - Chills [Unknown]
  - Body temperature decreased [Unknown]
  - Joint swelling [Unknown]
  - Emotional distress [Unknown]
  - Spinal fracture [Unknown]
  - Haemorrhoids [Unknown]
  - Blood pressure systolic increased [Unknown]
  - Gait disturbance [Unknown]
  - Peripheral swelling [Unknown]
  - Injection site bruising [Unknown]
  - Inappropriate schedule of drug administration [Unknown]
  - Wrong technique in product usage process [Unknown]
  - Blood lactic acid increased [Unknown]
  - Disorientation [Unknown]
  - Dehydration [Unknown]
  - Panic attack [Unknown]
  - Spinal compression fracture [Unknown]
  - Vomiting [Recovering/Resolving]
  - Perineal pain [Unknown]
  - Flushing [Unknown]
  - Feeling hot [Unknown]
  - Decubitus ulcer [Unknown]
  - Pain in extremity [Unknown]
  - Needle issue [Unknown]
  - Pain [Unknown]
  - Diarrhoea [Not Recovered/Not Resolved]
  - Confusional state [Unknown]
  - Nausea [Recovering/Resolving]
  - Weight decreased [Unknown]
  - Burning sensation [Unknown]
  - Pyrexia [Unknown]
  - Skin irritation [Unknown]
  - Amnesia [Unknown]
  - Contusion [Unknown]
  - Restlessness [Unknown]
  - Feeling abnormal [Unknown]
  - Blood pressure increased [Unknown]
  - Blood pressure diastolic decreased [Unknown]
  - Scab [Unknown]
  - Constipation [Unknown]
  - Blood thyroid stimulating hormone increased [Unknown]

NARRATIVE: CASE EVENT DATE: 20090727
